FAERS Safety Report 4905624-0 (Version None)
Quarter: 2006Q1

REPORT INFORMATION
  Report Type: 
  Country: None (occurrence: None)
  Receive Date: 20060113
  Receipt Date: 20050726
  Transmission Date: 20060701
  Serious: Yes (Other)
  Sender: FDA-Public Use
  Company Number: HQWYE580928JUL05

PATIENT
  Age: 55 Year
  Sex: Female

DRUGS (5)
  1. PREMPRO [Suspect]
     Indication: HORMONE REPLACEMENT THERAPY
     Dates: start: 19990101
  2. PREMPRO [Suspect]
     Indication: MENOPAUSE
     Dates: start: 19990101
  3. MEDROXYPROGESTERONE ACETATE [Suspect]
  4. PREMARIN [Suspect]
     Indication: HORMONE REPLACEMENT THERAPY
     Dosage: ORAL
     Route: 048
     Dates: start: 19990101, end: 20040101
  5. PREMARIN [Suspect]
     Indication: MENOPAUSAL SYMPTOMS
     Dosage: ORAL
     Route: 048
     Dates: start: 19990101, end: 20040101

REACTIONS (1)
  - BREAST CANCER [None]
